FAERS Safety Report 7659307-7 (Version None)
Quarter: 2011Q3

REPORT INFORMATION
  Report Type: 
  Country: None (occurrence: None)
  Receive Date: 20110805
  Receipt Date: 20110128
  Transmission Date: 20111222
  Serious: Yes (Other)
  Sender: FDA-Public Use
  Company Number: US-BAYER-2011-002977

PATIENT
  Age: 92 Year
  Sex: Male
  Weight: 55 kg

DRUGS (7)
  1. CAMPHO-PHENIQUE ANTISEPTIC LIQUID [Suspect]
     Indication: PULMONARY FIBROSIS
     Dosage: APPLIED IT UNDER HER NOSE
     Route: 045
  2. PLAVIX [Concomitant]
  3. CAMPHO-PHENIQUE ANTISEPTIC LIQUID [Suspect]
     Dosage: 3 TO 4 TIMES EVERY DAY UNDER HIS NOSE
     Route: 045
  4. PREDNISONE [Concomitant]
  5. IMDUR [Concomitant]
  6. PRAVASTATIN [Concomitant]
  7. LISINOPRIL [Concomitant]

REACTIONS (3)
  - PULMONARY FIBROSIS [None]
  - TOTAL LUNG CAPACITY INCREASED [None]
  - DYSPNOEA [None]
